FAERS Safety Report 9719075 (Version 1)
Quarter: 2013Q4

REPORT INFORMATION
  Report Type: Spontaneous
  Country: IN (occurrence: IN)
  Receive Date: 20131127
  Receipt Date: 20131127
  Transmission Date: 20140711
  Serious: Yes (Other)
  Sender: FDA-Public Use
  Company Number: IN-ABBVIE-13P-078-1173423-00

PATIENT
  Sex: 0

DRUGS (4)
  1. SEVOFLURANE [Suspect]
     Indication: ANAESTHESIA
  2. NITROUS OXIDE W/OXYGEN [Concomitant]
     Indication: ANAESTHESIA
  3. BUPIVACAINE [Concomitant]
     Indication: NERVE BLOCK
  4. ACETAMINOPHEN [Concomitant]
     Indication: PAIN
     Route: 042

REACTIONS (1)
  - Anaesthetic complication neurological [Unknown]
